FAERS Safety Report 7065296-9 (Version None)
Quarter: 2010Q4

REPORT INFORMATION
  Report Type: 
  Country: None (occurrence: None)
  Receive Date: 20101022
  Receipt Date: 20101022
  Transmission Date: 20110411
  Serious: Yes (Hospitalization)
  Sender: FDA-Public Use
  Company Number: None

PATIENT
  Age: 17 Year
  Sex: Female

DRUGS (14)
  1. VORICONAZOLE [Suspect]
     Dosage: 200 MG TWICE DAILY ORAL (047)
     Route: 048
     Dates: start: 20071231, end: 20100419
  2. TACROLIMUS [Concomitant]
  3. AMLODIPINE [Concomitant]
  4. METOPROLOL [Concomitant]
  5. AZITHROMYCIN [Concomitant]
  6. BENZONATATE [Concomitant]
  7. COZAAR [Concomitant]
  8. DUONEB SOLUTION [Concomitant]
  9. ESTRADERM [Concomitant]
  10. PROVERA [Concomitant]
  11. PREDNISONE [Concomitant]
  12. SIMVASTATIN [Concomitant]
  13. ZOLOFT [Concomitant]
  14. MULTI-VITAMIN [Concomitant]

REACTIONS (6)
  - ALOPECIA [None]
  - BLOOD PARATHYROID HORMONE INCREASED [None]
  - FLUOROSIS [None]
  - HIGH TURNOVER OSTEOPATHY [None]
  - RALES [None]
  - SKIN NODULE [None]
